FAERS Safety Report 9760303 (Version 2)
Quarter: 2015Q3

REPORT INFORMATION
  Report Type: Spontaneous
  Country: US (occurrence: US)
  Receive Date: 20131216
  Receipt Date: 20150806
  Transmission Date: 20151125
  Serious: No
  Sender: FDA-Public Use
  Company Number: US-GILEAD-2010-0029227

PATIENT
  Age: 72 Year
  Sex: Female
  Weight: 104.78 kg

DRUGS (15)
  1. SPIRONOLACTONE. [Concomitant]
     Active Substance: SPIRONOLACTONE
  2. KLOR-CON [Concomitant]
     Active Substance: POTASSIUM CHLORIDE
  3. PRINIVIL [Concomitant]
     Active Substance: LISINOPRIL
  4. PEPCID [Concomitant]
     Active Substance: FAMOTIDINE
  5. HUMALOG [Concomitant]
     Active Substance: INSULIN LISPRO
  6. XALATAN [Concomitant]
     Active Substance: LATANOPROST
  7. LASIX [Concomitant]
     Active Substance: FUROSEMIDE
  8. SYNTHROID [Concomitant]
     Active Substance: LEVOTHYROXINE SODIUM
  9. ALPHAGAN P [Concomitant]
     Active Substance: BRIMONIDINE TARTRATE
  10. SPIRIVA [Concomitant]
     Active Substance: TIOTROPIUM BROMIDE MONOHYDRATE
  11. LETAIRIS [Suspect]
     Active Substance: AMBRISENTAN
     Indication: PULMONARY ARTERIAL HYPERTENSION
     Route: 048
     Dates: start: 20100308
  12. LANTUS [Concomitant]
     Active Substance: INSULIN GLARGINE
  13. COZAAR [Concomitant]
     Active Substance: LOSARTAN POTASSIUM
  14. PROAIR HFA [Concomitant]
     Active Substance: ALBUTEROL SULFATE
  15. CLONIDINE HCL [Concomitant]
     Active Substance: CLONIDINE HYDROCHLORIDE

REACTIONS (1)
  - Malaise [Unknown]
